FAERS Safety Report 9438812 (Version 1)
Quarter: 2013Q3

REPORT INFORMATION
  Report Type: Report from Study
  Country: GR (occurrence: GR)
  Receive Date: 20130802
  Receipt Date: 20130802
  Transmission Date: 20140515
  Serious: Yes (Other)
  Sender: FDA-Public Use
  Company Number: GR-US-EMD SERONO, INC.-7226146

PATIENT
  Age: 45 Year
  Sex: Female
  Weight: 70 kg

DRUGS (3)
  1. REBIF [Suspect]
     Indication: MULTIPLE SCLEROSIS
     Route: 058
     Dates: start: 20121020, end: 20130322
  2. REBIF [Suspect]
     Route: 058
     Dates: start: 20130323, end: 20130517
  3. NEUROBION [Suspect]
     Indication: MULTIPLE SCLEROSIS
     Route: 048
     Dates: start: 20121020

REACTIONS (4)
  - Haemangioma of liver [Unknown]
  - Nuclear magnetic resonance imaging thoracic abnormal [Unknown]
  - Hepatic enzyme increased [Unknown]
  - Depression [Unknown]
